FAERS Safety Report 13101632 (Version 3)
Quarter: 2017Q2

REPORT INFORMATION
  Report Type: Spontaneous
  Country: FR (occurrence: FR)
  Receive Date: 20170110
  Receipt Date: 20170524
  Transmission Date: 20170830
  Serious: Yes (Other)
  Sender: FDA-Public Use
  Company Number: FR-JNJFOC-20170104702

PATIENT
  Age: 31 Year
  Sex: Female

DRUGS (4)
  1. INEXIUM [Concomitant]
     Active Substance: ESOMEPRAZOLE
     Dosage: IN THE EVENING
     Route: 065
  2. PARACETAMOL [Concomitant]
     Active Substance: ACETAMINOPHEN
     Dosage: 1 G X 3 / DAY IF NEEDED
     Route: 065
  3. SIMPONI [Suspect]
     Active Substance: GOLIMUMAB
     Indication: ANKYLOSING SPONDYLITIS
     Route: 058
     Dates: start: 20161205, end: 20161205
  4. DICLOFENAC [Concomitant]
     Active Substance: DICLOFENAC
     Dosage: IN THE MORNING AND EVENING
     Route: 065

REACTIONS (4)
  - Visual acuity reduced [Recovered/Resolved]
  - Multiple sclerosis [Not Recovered/Not Resolved]
  - Vision blurred [Recovered/Resolved]
  - Optic neuritis [Recovered/Resolved]

NARRATIVE: CASE EVENT DATE: 201612
